FAERS Safety Report 23196175 (Version 1)
Quarter: 2023Q4

REPORT INFORMATION
  Report Type: Spontaneous
  Country: US (occurrence: US)
  Receive Date: 20231117
  Receipt Date: 20231117
  Transmission Date: 20240110
  Serious: No
  Sender: FDA-Public Use
  Company Number: US-SA-SAC20231113000128

PATIENT
  Age: 15 Year
  Sex: Male
  Weight: 83.9 kg

DRUGS (1)
  1. DUPIXENT [Suspect]
     Active Substance: DUPILUMAB
     Indication: Dermatitis atopic
     Dosage: 300 MG, QOW
     Route: 058

REACTIONS (6)
  - Malaise [Unknown]
  - Rash macular [Unknown]
  - Fatigue [Unknown]
  - Asthenia [Unknown]
  - Nervousness [Unknown]
  - Injection site mass [Unknown]

NARRATIVE: CASE EVENT DATE: 20231104
